FAERS Safety Report 9716988 (Version 2)
Quarter: 2013Q4

REPORT INFORMATION
  Report Type: Spontaneous
  Country: US (occurrence: US)
  Receive Date: 20131127
  Receipt Date: 20131127
  Transmission Date: 20140711
  Serious: No
  Sender: FDA-Public Use
  Company Number: US-GILEAD-2009-0020056

PATIENT
  Age: 56 Year
  Sex: Male
  Weight: 78.47 kg

DRUGS (10)
  1. LETAIRIS [Suspect]
     Indication: PULMONARY ARTERIAL HYPERTENSION
     Route: 048
     Dates: start: 20090116, end: 20090127
  2. REVATIO [Concomitant]
  3. HYDROCHLOROTHIAZIDE [Concomitant]
  4. VERAPAMIL [Concomitant]
  5. ALBUTEROL [Concomitant]
  6. ALLEGRA [Concomitant]
  7. VERAMYST [Concomitant]
  8. ACYCLOVIR [Concomitant]
  9. ASA LO-DOSE [Concomitant]
  10. CELEBREX [Concomitant]

REACTIONS (3)
  - Local swelling [Not Recovered/Not Resolved]
  - Dyspnoea [Not Recovered/Not Resolved]
  - Oedema [Not Recovered/Not Resolved]
